FAERS Safety Report 4902542-9 (Version None)
Quarter: 2006Q1

REPORT INFORMATION
  Report Type: 
  Country: None (occurrence: None)
  Receive Date: 20060202
  Receipt Date: 20060127
  Transmission Date: 20060701
  Serious: Yes (Hospitalization)
  Sender: FDA-Public Use
  Company Number: J081-002-002165

PATIENT
  Age: 58 Year
  Sex: Female
  Weight: 46 kg

DRUGS (5)
  1. ARICEPT [Suspect]
     Indication: DEMENTIA ALZHEIMER'S TYPE
     Dosage: 3 MG, 1 IN 1 D, ORAL
     Route: 048
     Dates: start: 20050930, end: 20060119
  2. TOLEDOMIN (MILNACIPRAN HYDROCHLORIDE) [Concomitant]
  3. AMOXAPINE [Concomitant]
  4. ROHYPNOL (FLUNITRAZEPAM) [Concomitant]
  5. LENDORMIN D (BROTIZOLAM) [Concomitant]

REACTIONS (3)
  - GRAND MAL CONVULSION [None]
  - MANIA [None]
  - OVERDOSE [None]
